FAERS Safety Report 11692771 (Version 1)
Quarter: 2015Q4

REPORT INFORMATION
  Report Type: Spontaneous
  Country: GB (occurrence: GB)
  Receive Date: 20151103
  Receipt Date: 20151103
  Transmission Date: 20160304
  Serious: Yes (Other)
  Sender: FDA-Public Use
  Company Number: GB-TEVA-604777ACC

PATIENT
  Age: 64 Year
  Sex: Female
  Weight: 80 kg

DRUGS (3)
  1. GABAPENTIN. [Suspect]
     Active Substance: GABAPENTIN
     Indication: COMPLEX REGIONAL PAIN SYNDROME
     Dosage: 600 MILLIGRAM DAILY;
     Route: 048
     Dates: start: 20150602, end: 20150717
  2. DICLOFENAC SODIUM. [Concomitant]
     Active Substance: DICLOFENAC SODIUM
     Indication: FIBROMYALGIA
     Dosage: 100 MILLIGRAM DAILY; ONGOING
     Route: 048
     Dates: start: 20070323
  3. LIOTHYRONINE SODIUM. [Concomitant]
     Active Substance: LIOTHYRONINE SODIUM
     Indication: TRI-IODOTHYRONINE DECREASED
     Dosage: 60 MICROGRAM DAILY; ONGOING
     Route: 048
     Dates: start: 20111013

REACTIONS (4)
  - Suicidal ideation [Recovered/Resolved]
  - Tremor [Recovered/Resolved]
  - Food craving [Recovered/Resolved]
  - Fatigue [Recovered/Resolved]
